FAERS Safety Report 4716341-4 (Version None)
Quarter: 2005Q3

REPORT INFORMATION
  Report Type: 
  Country: None (occurrence: None)
  Receive Date: 20050711
  Receipt Date: 20050321
  Transmission Date: 20060218
  Serious: Yes (Other)
  Sender: FDA-Public Use
  Company Number: ENTC2005-0091

PATIENT
  Age: 70 Year
  Sex: Male
  Weight: 53.5 kg

DRUGS (4)
  1. STALEVO 100 [Suspect]
     Indication: PARKINSON'S DISEASE
     Dosage: 50 MG/12,5MG/200MG TID, ORAL
     Route: 048
     Dates: start: 20050120, end: 20050203
  2. CENTRUM SILVER(UNKNOWN) [Concomitant]
  3. COD-LIVER OIL(UNKNOWN) [Concomitant]
  4. CALTRATE(UNKNOWN) [Concomitant]

REACTIONS (2)
  - ARTHRALGIA [None]
  - CONSTIPATION [None]
